FAERS Safety Report 5745798-5 (Version None)
Quarter: 2008Q2

REPORT INFORMATION
  Report Type: 
  Country: None (occurrence: None)
  Receive Date: 20080521
  Receipt Date: 20080513
  Transmission Date: 20081010
  Serious: Yes (Other)
  Sender: FDA-Public Use
  Company Number: GB-PFIZER INC-2008041826

PATIENT
  Sex: Male

DRUGS (8)
  1. DOXAZOSIN MESYLATE [Suspect]
     Indication: HYPERTENSION
  2. DOXAZOSIN MESYLATE [Suspect]
     Route: 048
  3. IRBESARTAN [Concomitant]
     Dosage: DAILY DOSE:300MG
  4. AMLODIPINE [Concomitant]
     Dosage: DAILY DOSE:10MG
  5. ACETYLSALICYLIC ACID SRT [Concomitant]
     Dosage: DAILY DOSE:75MG
  6. SIMVASTATIN [Concomitant]
     Indication: HYPERTENSION
     Dosage: DAILY DOSE:40MG
  7. NASONEX [Concomitant]
  8. BENDROFLUMETHIAZIDE [Concomitant]
     Dosage: DAILY DOSE:2.5MG

REACTIONS (12)
  - BACK DISORDER [None]
  - DIZZINESS [None]
  - FALL [None]
  - FATIGUE [None]
  - FEELING ABNORMAL [None]
  - FIBROMYALGIA [None]
  - HYPERHIDROSIS [None]
  - PARAESTHESIA [None]
  - PARALYSIS [None]
  - REFLUX LARYNGITIS [None]
  - RHINITIS [None]
  - SENSORY LOSS [None]
